FAERS Safety Report 7166281-9 (Version None)
Quarter: 2010Q4

REPORT INFORMATION
  Report Type: 
  Country: None (occurrence: None)
  Receive Date: 20101216
  Receipt Date: 20101203
  Transmission Date: 20110411
  Serious: Yes (Hospitalization, Other)
  Sender: FDA-Public Use
  Company Number: US-ELI_LILLY_AND_COMPANY-US201008008216

PATIENT
  Sex: Female

DRUGS (16)
  1. FORTEO [Suspect]
     Indication: OSTEOPOROSIS
     Dosage: 20 UG, DAILY (1/D)
     Route: 065
     Dates: start: 20100624
  2. BYSTOLIC [Concomitant]
     Dosage: 5 MG, UNK
  3. URSODIOL [Concomitant]
     Dosage: 500 MG, 2/D
  4. OMEPRAZOLE [Concomitant]
     Dosage: UNK, 2/D
  5. FLUTICASONE PROPIONATE [Concomitant]
     Indication: HYPERSENSITIVITY
  6. RESTASIS [Concomitant]
  7. ALVESCO [Concomitant]
     Dosage: UNK, 2/D
  8. SEREVENT [Concomitant]
     Dosage: UNK, 2/D
  9. MUCINEX [Concomitant]
     Indication: HYPERSENSITIVITY
  10. ZYRTEC [Concomitant]
     Indication: HYPERSENSITIVITY
  11. CALCIUM+VIT D /00944201/ [Concomitant]
     Dosage: UNK, 2/D
  12. FOLIC ACID [Concomitant]
     Dosage: 400 MG, DAILY (1/D)
  13. METHOTREXATE [Concomitant]
     Dosage: 2.5 MG, OTHER
  14. HYDROXYCHLOROQUINE [Concomitant]
     Dosage: 200 MG, UNK
  15. MELOXICAM [Concomitant]
  16. AMLODIPINE BESYLATE AND BENAZEPRIL HYDROCHLORIDE [Concomitant]
     Dosage: UNK, DAILY (1/D)

REACTIONS (2)
  - FALL [None]
  - HIP FRACTURE [None]
